FAERS Safety Report 8928686 (Version 1)
Quarter: 2012Q4

REPORT INFORMATION
  Report Type: 
  Country: US (occurrence: US)
  Receive Date: 20121128
  Receipt Date: 20121128
  Transmission Date: 20130627
  Serious: No
  Sender: FDA-Public Use
  Company Number: US-PFIZER INC-2012296946

PATIENT
  Sex: Male

DRUGS (2)
  1. ADVIL [Suspect]
     Indication: BACK PAIN
     Dosage: UNK
     Route: 048
  2. ADVIL [Suspect]
     Dosage: 400 mg, 2x/day
     Route: 048
     Dates: start: 20121126

REACTIONS (2)
  - Incorrect dose administered [Unknown]
  - Drug ineffective [Unknown]
